FAERS Safety Report 25586722 (Version 2)
Quarter: 2025Q3

REPORT INFORMATION
  Report Type: Report from Study
  Country: US (occurrence: US)
  Receive Date: 20250721
  Receipt Date: 20250807
  Transmission Date: 20251020
  Serious: Yes (Other)
  Sender: PFIZER
  Company Number: US-PFIZER INC-PV202500040162

PATIENT
  Age: 53 Year
  Sex: Male

DRUGS (3)
  1. LORBRENA [Suspect]
     Active Substance: LORLATINIB
     Indication: Lung neoplasm malignant
     Dosage: 100 MG, 1X/DAY (ONCE DAILY)
     Route: 048
     Dates: start: 20250317
  2. LORBRENA [Suspect]
     Active Substance: LORLATINIB
     Dosage: 100 MG, 1X/DAY (ONE TIME DAILY)
     Route: 048
     Dates: start: 2025
  3. LORBRENA [Suspect]
     Active Substance: LORLATINIB
     Dosage: 100 MG TABLET BY MOUTH ONCE DAILY
     Route: 048
     Dates: start: 20250317, end: 20250703

REACTIONS (16)
  - Neuropathy peripheral [Recovering/Resolving]
  - Type 2 diabetes mellitus [Recovering/Resolving]
  - Condition aggravated [Recovering/Resolving]
  - Pneumonia [Recovering/Resolving]
  - Dyspepsia [Not Recovered/Not Resolved]
  - Brain fog [Unknown]
  - Eructation [Not Recovered/Not Resolved]
  - Irritability [Unknown]
  - Blood pressure increased [Recovering/Resolving]
  - Diarrhoea [Recovering/Resolving]
  - Agitation [Recovering/Resolving]
  - Peripheral swelling [Not Recovered/Not Resolved]
  - Epistaxis [Recovering/Resolving]
  - Rhinorrhoea [Recovering/Resolving]
  - Fatigue [Recovering/Resolving]
  - Dyspnoea [Recovering/Resolving]

NARRATIVE: CASE EVENT DATE: 20250101
